FAERS Safety Report 21193543 (Version 2)
Quarter: 2022Q3

REPORT INFORMATION
  Report Type: Spontaneous
  Country: US (occurrence: None)
  Receive Date: 20220810
  Receipt Date: 20220823
  Transmission Date: 20221027
  Serious: Yes (Life-Threatening, Hospitalization)
  Sender: FDA-Public Use
  Company Number: US-Unichem Pharmaceuticals (USA) Inc-UCM202208-000745

PATIENT
  Age: 17 Year
  Sex: Female
  Weight: 103 kg

DRUGS (4)
  1. AMLODIPINE [Suspect]
     Active Substance: AMLODIPINE BESYLATE
     Indication: Overdose
     Dosage: 500 TO 550 MG
  2. ACETAMINOPHEN [Suspect]
     Active Substance: ACETAMINOPHEN
     Indication: Overdose
     Dosage: UNKNOWN
  3. IBUPROFEN [Suspect]
     Active Substance: IBUPROFEN
     Indication: Overdose
     Dosage: UNKNOWN
  4. AMOXICILLIN [Suspect]
     Active Substance: AMOXICILLIN
     Indication: Overdose
     Dosage: UNKNOWN

REACTIONS (11)
  - Circulatory collapse [Recovered/Resolved]
  - Vasoplegia syndrome [Recovered/Resolved]
  - Seizure [Recovered/Resolved]
  - Acute kidney injury [Recovered/Resolved]
  - Cerebrovascular accident [Unknown]
  - Visual impairment [Unknown]
  - Hypotension [Recovered/Resolved]
  - Tachycardia [Recovered/Resolved]
  - Pulmonary oedema [Recovered/Resolved]
  - Overdose [Unknown]
  - Toxicity to various agents [Unknown]
